FAERS Safety Report 20048345 (Version 1)
Quarter: 2021Q4

REPORT INFORMATION
  Report Type: Spontaneous
  Country: US (occurrence: US)
  Receive Date: 20211109
  Receipt Date: 20211109
  Transmission Date: 20220303
  Serious: No
  Sender: FDA-Public Use
  Company Number: US-SA-SAC20211103000600

PATIENT
  Age: 59 Year
  Sex: Male

DRUGS (20)
  1. DUPIXENT [Suspect]
     Active Substance: DUPILUMAB
     Indication: Asthma
     Dosage: 300 MG, QOW
     Route: 058
     Dates: start: 20210427
  2. HUMIRA [Concomitant]
     Active Substance: ADALIMUMAB
  3. AZITHROMYCIN [Concomitant]
     Active Substance: AZITHROMYCIN
  4. CITALOPRAM [Concomitant]
     Active Substance: CITALOPRAM HYDROBROMIDE
  5. GABAPENTIN [Concomitant]
     Active Substance: GABAPENTIN
  6. METHOTREXATE [Concomitant]
     Active Substance: METHOTREXATE
  7. MONTELUKAST [Concomitant]
     Active Substance: MONTELUKAST SODIUM
  8. OMEPRAZOLE [Concomitant]
     Active Substance: OMEPRAZOLE
  9. TEMAZEPAM [Concomitant]
     Active Substance: TEMAZEPAM
  10. TESTOSTERONE [Concomitant]
     Active Substance: TESTOSTERONE
  11. TRAZODONE [Concomitant]
     Active Substance: TRAZODONE HYDROCHLORIDE
  12. TRELEGY ELLIPTA [Concomitant]
     Active Substance: FLUTICASONE FUROATE\UMECLIDINIUM BROMIDE\VILANTEROL TRIFENATATE
  13. PREDNISONE [Concomitant]
     Active Substance: PREDNISONE
  14. DICLOFENAC [Concomitant]
     Active Substance: DICLOFENAC
  15. FOLIC ACID [Concomitant]
     Active Substance: FOLIC ACID
  16. ATORVASTATIN [Concomitant]
     Active Substance: ATORVASTATIN
  17. AMITRIPTYLINE [Concomitant]
     Active Substance: AMITRIPTYLINE
  18. BUPROPION HYDROCHLORIDE XL [Concomitant]
     Active Substance: BUPROPION HYDROCHLORIDE
  19. CEFDINIR [Concomitant]
     Active Substance: CEFDINIR
  20. TIZANIDINE [Concomitant]
     Active Substance: TIZANIDINE

REACTIONS (2)
  - Asthma [Unknown]
  - Product use issue [Unknown]

NARRATIVE: CASE EVENT DATE: 20210427
